FAERS Safety Report 16825688 (Version 1)
Quarter: 2019Q3

REPORT INFORMATION
  Report Type: Spontaneous
  Country: JP (occurrence: JP)
  Receive Date: 20190919
  Receipt Date: 20190919
  Transmission Date: 20191005
  Serious: No
  Sender: FDA-Public Use
  Company Number: JP-ALKEM LABORATORIES LIMITED-JP-ALKEM-2019-06124

PATIENT
  Age: 40 Year
  Sex: Female

DRUGS (5)
  1. EBASTINE [Concomitant]
     Active Substance: EBASTINE
     Indication: PRURITUS
     Dosage: UNK
     Route: 065
  2. ANAGRELIDE. [Concomitant]
     Active Substance: ANAGRELIDE HYDROCHLORIDE
     Indication: ESSENTIAL THROMBOCYTHAEMIA
     Dosage: 2.5 MILLIGRAM, QD
     Route: 065
  3. OXALIPLATIN. [Suspect]
     Active Substance: OXALIPLATIN
     Indication: COLORECTAL CANCER STAGE III
     Dosage: 130 MILLIGRAM/SQ. METER
     Route: 042
  4. ASPIRIN. [Concomitant]
     Active Substance: ASPIRIN
     Indication: ESSENTIAL THROMBOCYTHAEMIA
     Dosage: 100 MILLIGRAM, QD
     Route: 065
  5. CAPECITABINE. [Suspect]
     Active Substance: CAPECITABINE
     Indication: COLORECTAL CANCER STAGE II
     Dosage: 1000 MILLIGRAM/SQ. METER
     Route: 048

REACTIONS (1)
  - Hepatic function abnormal [Recovered/Resolved]
